FAERS Safety Report 12471655 (Version 1)
Quarter: 2016Q2

REPORT INFORMATION
  Report Type: Spontaneous
  Country: US (occurrence: US)
  Receive Date: 20160616
  Receipt Date: 20160616
  Transmission Date: 20160815
  Serious: Yes (Death)
  Sender: FDA-Public Use
  Company Number: US-TAIHO ONCOLOGY INC-EU-2016-01234

PATIENT
  Age: 35 Year
  Sex: Male
  Weight: 87.17 kg

DRUGS (1)
  1. LONSURF [Suspect]
     Active Substance: TIPIRACIL HYDROCHLORIDE\TRIFLURIDINE
     Indication: COLON CANCER
     Dosage: CURRENT CYCLE 4
     Route: 048
     Dates: start: 20160321

REACTIONS (1)
  - Death [Fatal]

NARRATIVE: CASE EVENT DATE: 20160514
